FAERS Safety Report 25153988 (Version 1)
Quarter: 2025Q2

REPORT INFORMATION
  Report Type: Other
  Country: IN (occurrence: IN)
  Receive Date: 20250403
  Receipt Date: 20250403
  Transmission Date: 20250716
  Serious: Yes (Hospitalization)
  Sender: ESJAY PHARMA
  Company Number: IN-ESJAY PHARMA-000490

PATIENT
  Age: 31 Year
  Sex: Male

DRUGS (2)
  1. METRONIDAZOLE [Suspect]
     Active Substance: METRONIDAZOLE
     Indication: Liver abscess
     Route: 042
  2. METRONIDAZOLE [Suspect]
     Active Substance: METRONIDAZOLE
     Indication: Liver abscess
     Route: 048

REACTIONS (2)
  - Anosognosia [Recovering/Resolving]
  - Toxicity to various agents [Recovering/Resolving]
